FAERS Safety Report 8228881-4 (Version None)
Quarter: 2012Q1

REPORT INFORMATION
  Report Type: 
  Country: None (occurrence: None)
  Receive Date: 20120322
  Receipt Date: 20120307
  Transmission Date: 20120608
  Serious: Yes (Life-Threatening, Hospitalization, Disabling, Other)
  Sender: FDA-Public Use
  Company Number: GB-WATSON-2009A-00729

PATIENT
  Age: 57 Year
  Sex: Female
  Weight: 65 kg

DRUGS (9)
  1. MENOPACE [Concomitant]
     Indication: PRODUCT USED FOR UNKNOWN INDICATION
     Dosage: UNKNOWN
     Route: 065
  2. OREGANO OIL [Concomitant]
     Indication: PRODUCT USED FOR UNKNOWN INDICATION
  3. BENDROFLUMETHIAZIDE [Suspect]
     Indication: HYPERTENSION
     Dosage: 2.5MG DAILY
     Route: 048
     Dates: start: 20050101, end: 20090205
  4. CITALOPRAM HYDROBROMIDE [Suspect]
     Dosage: 20 MG, UNKNOWN
     Route: 048
     Dates: start: 20090202, end: 20090205
  5. RAMIPRIL [Suspect]
     Dosage: 2.5MG DAILY
     Route: 048
     Dates: start: 20060101, end: 20090205
  6. METRONIDAZOLE [Suspect]
     Indication: PROPHYLAXIS
     Dosage: 200MG THREE TIMES DAILY
     Route: 048
     Dates: start: 20090202, end: 20090205
  7. ACETAMINOPHEN [Concomitant]
     Indication: PRODUCT USED FOR UNKNOWN INDICATION
     Dosage: UNKNOWN
     Route: 065
  8. GARLIC OIL ESSENTIAL [Concomitant]
     Indication: PRODUCT USED FOR UNKNOWN INDICATION
     Dosage: UNKNOWN
     Route: 065
  9. MAGNESIUM [Concomitant]
     Indication: PRODUCT USED FOR UNKNOWN INDICATION
     Dosage: UNKNOWN
     Route: 065

REACTIONS (9)
  - OSMOTIC DEMYELINATION SYNDROME [None]
  - HYPONATRAEMIA [None]
  - MEMORY IMPAIRMENT [None]
  - CONVULSION [None]
  - GAIT DISTURBANCE [None]
  - FEELING HOT [None]
  - THIRST [None]
  - DRUG INTERACTION [None]
  - VOMITING [None]
